FAERS Safety Report 9170431 (Version 1)
Quarter: 2013Q1

REPORT INFORMATION
  Report Type: Spontaneous
  Country: ZA (occurrence: ZA)
  Receive Date: 20130319
  Receipt Date: 20130319
  Transmission Date: 20140127
  Serious: Yes (Hospitalization)
  Sender: FDA-Public Use
  Company Number: ZA-JNJFOC-20130303708

PATIENT
  Sex: Female

DRUGS (2)
  1. REVELLEX [Suspect]
     Indication: PSORIATIC ARTHROPATHY
     Route: 042
     Dates: start: 20120305
  2. REVELLEX [Suspect]
     Indication: PSORIATIC ARTHROPATHY
     Dosage: LAST INFUSION
     Route: 042
     Dates: start: 20130109

REACTIONS (1)
  - Surgery [Unknown]
